FAERS Safety Report 20156801 (Version 3)
Quarter: 2022Q1

REPORT INFORMATION
  Report Type: Report from Study
  Country: US (occurrence: US)
  Receive Date: 20211207
  Receipt Date: 20220208
  Transmission Date: 20220423
  Serious: No
  Sender: FDA-Public Use
  Company Number: US-NOVARTISTESTPH-NVSC2021US279645

PATIENT
  Sex: Male

DRUGS (3)
  1. ENTRESTO [Suspect]
     Active Substance: SACUBITRIL\VALSARTAN
     Indication: Product used for unknown indication
     Dosage: 1 DOSAGE FORM (97/103 MG)
     Route: 065
     Dates: start: 2016
  2. ENTRESTO [Suspect]
     Active Substance: SACUBITRIL\VALSARTAN
     Dosage: 1 DOSAGE FORM (97/103 MG)
     Route: 065
     Dates: start: 2016
  3. FUROSEMIDE [Concomitant]
     Active Substance: FUROSEMIDE
     Indication: Product used for unknown indication
     Dosage: UNK
     Route: 065
     Dates: start: 2014

REACTIONS (16)
  - Weight decreased [Recovered/Resolved]
  - Dizziness [Recovering/Resolving]
  - Blood glucose decreased [Recovering/Resolving]
  - Food craving [Recovering/Resolving]
  - Pollakiuria [Recovering/Resolving]
  - Swelling [Recovering/Resolving]
  - Weight increased [Not Recovered/Not Resolved]
  - Pain in extremity [Recovering/Resolving]
  - Hypoaesthesia [Recovering/Resolving]
  - Dysstasia [Recovering/Resolving]
  - Nasopharyngitis [Recovering/Resolving]
  - Glycosylated haemoglobin increased [Recovering/Resolving]
  - Dry throat [Not Recovered/Not Resolved]
  - Dehydration [Unknown]
  - Polydipsia [Not Recovered/Not Resolved]
  - Cough [Recovering/Resolving]

NARRATIVE: CASE EVENT DATE: 20180101
